FAERS Safety Report 10606958 (Version 1)
Quarter: 2014Q4

REPORT INFORMATION
  Report Type: Spontaneous
  Country: US (occurrence: US)
  Receive Date: 20141125
  Receipt Date: 20141125
  Transmission Date: 20150529
  Serious: No
  Sender: FDA-Public Use
  Company Number: US-TEVA-437185USA

PATIENT
  Sex: Female
  Weight: 54.48 kg

DRUGS (2)
  1. TOVIAZ [Suspect]
     Active Substance: FESOTERODINE FUMARATE
     Indication: BLADDER DISORDER
     Dates: start: 201306
  2. OXYBUTYNIN [Suspect]
     Active Substance: OXYBUTYNIN
     Indication: BLADDER DISORDER
     Dates: end: 2013

REACTIONS (2)
  - Drug ineffective [Unknown]
  - Urinary incontinence [Unknown]

NARRATIVE: CASE EVENT DATE: 2013
